FAERS Safety Report 16886409 (Version 1)
Quarter: 2019Q4

REPORT INFORMATION
  Report Type: Spontaneous
  Country: GB (occurrence: GB)
  Receive Date: 20191004
  Receipt Date: 20191004
  Transmission Date: 20200122
  Serious: Yes (Other)
  Sender: FDA-Public Use
  Company Number: GB-AMGEN-GBRSP2019160092

PATIENT
  Age: 37 Year
  Sex: Male

DRUGS (13)
  1. 5 FU [Concomitant]
     Active Substance: FLUOROURACIL
     Indication: METASTASES TO LIVER
  2. OXALIPLATIN. [Concomitant]
     Active Substance: OXALIPLATIN
     Indication: COLON CANCER METASTATIC
     Dosage: UNK UNK, CYCLICAL
     Dates: start: 201903
  3. PANITUMUMAB [Suspect]
     Active Substance: PANITUMUMAB
     Indication: METASTASES TO LIVER
  4. FOLINIC ACID [Concomitant]
     Active Substance: LEUCOVORIN
     Indication: COLON CANCER METASTATIC
     Dosage: UNK UNK, CYCLICAL
     Dates: start: 201903
  5. PANITUMUMAB [Suspect]
     Active Substance: PANITUMUMAB
     Indication: METASTASES TO LUNG
  6. 5 FU [Concomitant]
     Active Substance: FLUOROURACIL
     Indication: COLON CANCER METASTATIC
     Dosage: UNK UNK, CYCLICAL
     Dates: start: 201903
  7. OXALIPLATIN. [Concomitant]
     Active Substance: OXALIPLATIN
     Indication: METASTASES TO LIVER
  8. FOLINIC ACID [Concomitant]
     Active Substance: LEUCOVORIN
     Indication: METASTASES TO LUNG
  9. 5 FU [Concomitant]
     Active Substance: FLUOROURACIL
     Indication: METASTASES TO LUNG
  10. FOLINIC ACID [Concomitant]
     Active Substance: LEUCOVORIN
     Indication: METASTASES TO LIVER
  11. AVEENO [Concomitant]
     Active Substance: DIMETHICONE\HOMOSALATE\OCTINOXATE\OCTISALATE\TITANIUM DIOXIDE
     Dosage: UNK
     Dates: start: 201903
  12. PANITUMUMAB [Suspect]
     Active Substance: PANITUMUMAB
     Indication: COLON CANCER METASTATIC
     Dosage: UNK UNK, CYCLICAL
     Route: 065
     Dates: start: 201903
  13. OXALIPLATIN. [Concomitant]
     Active Substance: OXALIPLATIN
     Indication: METASTASES TO LUNG

REACTIONS (9)
  - Mental disorder [Unknown]
  - Fatigue [Unknown]
  - Performance status decreased [Unknown]
  - Vomiting [Unknown]
  - Nausea [Unknown]
  - Gait disturbance [Unknown]
  - Skin toxicity [Not Recovered/Not Resolved]
  - Sepsis [Unknown]
  - Disease progression [Not Recovered/Not Resolved]

NARRATIVE: CASE EVENT DATE: 2019
